FAERS Safety Report 9190388 (Version 2)
Quarter: 2013Q2

REPORT INFORMATION
  Report Type: Spontaneous
  Country: US (occurrence: US)
  Receive Date: 20130326
  Receipt Date: 20130425
  Transmission Date: 20140414
  Serious: Yes (Hospitalization)
  Sender: FDA-Public Use
  Company Number: US-BAYER-2013-034986

PATIENT
  Age: 29 Year
  Sex: Female
  Weight: 69 kg

DRUGS (4)
  1. MIRENA [Suspect]
     Indication: CONTRACEPTION
     Dosage: 20 MCG/24HR, CONT
     Route: 015
     Dates: start: 20100527
  2. TOPAMAX [Suspect]
     Indication: CONVULSION
     Dosage: 50 MG, BID
     Dates: start: 20120809
  3. TOPAMAX [Suspect]
     Indication: MIGRAINE
  4. ZOFRAN [Concomitant]
     Indication: NAUSEA
     Dosage: 4 MG, PRN

REACTIONS (10)
  - Convulsion [Recovering/Resolving]
  - Libido decreased [None]
  - Hypoaesthesia [None]
  - Paraesthesia [None]
  - Feeling abnormal [None]
  - Weight decreased [None]
  - Dizziness [None]
  - Depressed level of consciousness [None]
  - Migraine [None]
  - Dizziness [None]
